FAERS Safety Report 24679287 (Version 1)
Quarter: 2024Q4

REPORT INFORMATION
  Report Type: Spontaneous
  Country: US (occurrence: US)
  Receive Date: 20241129
  Receipt Date: 20241129
  Transmission Date: 20250114
  Serious: Yes (Other)
  Sender: RANBAXY
  Company Number: US-SUN PHARMACEUTICAL INDUSTRIES LTD-2024R1-481716

PATIENT
  Age: 38 Year
  Sex: Female

DRUGS (5)
  1. ENOXAPARIN SODIUM [Suspect]
     Active Substance: ENOXAPARIN SODIUM
     Indication: Deep vein thrombosis
     Dosage: UNK
     Route: 065
  2. FENOFIBRATE [Suspect]
     Active Substance: FENOFIBRATE
     Indication: Familial hypertriglyceridaemia
     Dosage: 145 MILLIGRAM, DAILY
     Route: 065
  3. INSULIN NOS [Suspect]
     Active Substance: INSULIN NOS
     Indication: Pancreatitis
     Dosage: UNK
     Route: 065
  4. PRAVASTATIN [Suspect]
     Active Substance: PRAVASTATIN
     Indication: Familial hypertriglyceridaemia
     Dosage: UNK
     Route: 065
  5. ICOSAPENT [Suspect]
     Active Substance: ICOSAPENT
     Indication: Familial hypertriglyceridaemia
     Dosage: 2 GRAM, BID
     Route: 065

REACTIONS (4)
  - Premature delivery [Unknown]
  - Premature separation of placenta [Unknown]
  - Exposure during pregnancy [Unknown]
  - Drug ineffective [Unknown]
